FAERS Safety Report 6265566-8 (Version None)
Quarter: 2009Q3

REPORT INFORMATION
  Report Type: 
  Country: None (occurrence: None)
  Receive Date: 20090713
  Receipt Date: 20090703
  Transmission Date: 20100115
  Serious: No
  Sender: FDA-Public Use
  Company Number: GB-ABBOTT-97P-167-0076682-00

PATIENT
  Age: 47 Year
  Sex: Male
  Weight: 75 kg

DRUGS (14)
  1. NORVIR CAPSULES [Suspect]
     Indication: HIV INFECTION
     Route: 065
     Dates: start: 19970203
  2. NORVIR CAPSULES [Suspect]
  3. NORVIR CAPSULES [Suspect]
  4. NORVIR CAPSULES [Suspect]
  5. NORVIR CAPSULES [Suspect]
  6. INVIRASE [Suspect]
     Indication: DRUG USE FOR UNKNOWN INDICATION
     Route: 065
     Dates: start: 19961015, end: 19970203
  7. INVIRASE [Suspect]
     Route: 065
     Dates: start: 19970203
  8. INVIRASE [Suspect]
     Route: 065
  9. ETHAMBUTOL [Concomitant]
     Indication: DRUG USE FOR UNKNOWN INDICATION
     Route: 065
  10. AZITHROMYCIN [Concomitant]
     Indication: DRUG USE FOR UNKNOWN INDICATION
     Route: 065
  11. SEPTRIN [Concomitant]
     Indication: DRUG USE FOR UNKNOWN INDICATION
     Route: 065
  12. CALCIUM FOLINATE [Concomitant]
     Indication: DRUG USE FOR UNKNOWN INDICATION
     Route: 065
  13. FLUCONAZOLE [Concomitant]
     Indication: DRUG USE FOR UNKNOWN INDICATION
     Route: 065
  14. NITRAZEPAM [Concomitant]
     Indication: DRUG USE FOR UNKNOWN INDICATION
     Route: 065

REACTIONS (3)
  - NEPHROLITHIASIS [None]
  - POTENTIATING DRUG INTERACTION [None]
  - RENAL COLIC [None]
